FAERS Safety Report 9642369 (Version 3)
Quarter: 2013Q4

REPORT INFORMATION
  Report Type: Spontaneous
  Country: US (occurrence: US)
  Receive Date: 20131024
  Receipt Date: 20131224
  Transmission Date: 20140711
  Serious: Yes (Hospitalization)
  Sender: FDA-Public Use
  Company Number: US-BIOGENIDEC-2013BI101606

PATIENT
  Age: 36 Year
  Sex: Female

DRUGS (14)
  1. TECFIDERA [Suspect]
     Indication: MULTIPLE SCLEROSIS
     Route: 048
  2. TECFIDERA [Suspect]
     Indication: MULTIPLE SCLEROSIS
     Route: 048
     Dates: start: 20130506
  3. IMITREX [Concomitant]
     Indication: MIGRAINE
     Route: 048
     Dates: start: 20130408
  4. VITAMIN D [Concomitant]
     Indication: VITAMIN D DEFICIENCY
     Dosage: DOSE UNIT:2000
     Dates: start: 20110822
  5. PROTONIX [Concomitant]
     Indication: GASTROOESOPHAGEAL REFLUX DISEASE
     Dates: start: 20111122
  6. NORCO [Concomitant]
     Indication: PAIN
     Route: 048
     Dates: start: 20130405
  7. AMBIEN [Concomitant]
     Indication: INSOMNIA
  8. ALPRAZOLAM [Concomitant]
     Indication: ANXIETY
     Route: 048
     Dates: start: 20131010
  9. TIZANIDINE [Concomitant]
     Indication: MUSCLE SPASMS
     Route: 048
     Dates: start: 20130818
  10. K-TAB [Concomitant]
     Indication: HYPOKALAEMIA
     Dates: start: 20110103
  11. CYMBALTA [Concomitant]
     Route: 048
     Dates: start: 20130405
  12. PREDNISONE [Concomitant]
     Route: 048
     Dates: start: 20131119
  13. EXALGO [Concomitant]
     Indication: PAIN
     Dates: start: 20131129
  14. LUNESTA [Concomitant]
     Indication: INSOMNIA
     Dates: start: 20131129

REACTIONS (1)
  - Diverticulitis [Recovered/Resolved]
